FAERS Safety Report 13651009 (Version 1)
Quarter: 2017Q2

REPORT INFORMATION
  Report Type: Spontaneous
  Country: BR (occurrence: BR)
  Receive Date: 20170614
  Receipt Date: 20170614
  Transmission Date: 20170830
  Serious: Yes (Other)
  Sender: FDA-Public Use
  Company Number: BR-009507513-1706BRA004928

PATIENT
  Age: 55 Year
  Sex: Female
  Weight: 59 kg

DRUGS (5)
  1. JANUVIA [Suspect]
     Active Substance: SITAGLIPTIN PHOSPHATE
     Indication: DIABETES MELLITUS
     Dosage: 50 MG PER DAY
     Route: 048
     Dates: start: 2014, end: 2015
  2. GLIFAGE [Concomitant]
     Active Substance: METFORMIN HYDROCHLORIDE
     Indication: DIABETES MELLITUS
     Dosage: 2 500 MG TABLETS AFTER LUNCH AND 2 TABLETS AFTER DINNER
     Route: 048
     Dates: start: 2005
  3. JANUVIA [Suspect]
     Active Substance: SITAGLIPTIN PHOSPHATE
     Indication: DIABETES MELLITUS
     Dosage: 100 MG TABLET PER DAY
     Route: 048
     Dates: start: 2015, end: 201701
  4. PRESS PLUS [Concomitant]
     Indication: HYPERTENSION
     Dosage: 1 TABLET BEFORE DINNER
     Route: 048
     Dates: start: 201610
  5. JANUVIA [Suspect]
     Active Substance: SITAGLIPTIN PHOSPHATE
     Dosage: HALF 100 MG TABLET AFTER LUNCH AND HALF 100 MG TABLET AFTER DINNER
     Route: 048
     Dates: start: 201701, end: 201704

REACTIONS (3)
  - Blood glucose abnormal [Unknown]
  - Diabetes mellitus [Recovered/Resolved]
  - Inappropriate schedule of drug administration [Unknown]

NARRATIVE: CASE EVENT DATE: 2014
